FAERS Safety Report 4369765-1 (Version None)
Quarter: 2004Q2

REPORT INFORMATION
  Report Type: 
  Country: None (occurrence: None)
  Receive Date: 20040528
  Receipt Date: 20040420
  Transmission Date: 20050107
  Serious: Yes (Hospitalization)
  Sender: FDA-Public Use
  Company Number: 2004UW08038

PATIENT
  Age: 81 Year
  Sex: Female

DRUGS (2)
  1. SEROQUEL [Suspect]
  2. HALDOL ^JANSEEN^ [Concomitant]

REACTIONS (5)
  - BLOOD CREATINE PHOSPHOKINASE INCREASED [None]
  - BLOOD GLUCOSE INCREASED [None]
  - HEPATIC ENZYME INCREASED [None]
  - MUSCLE RIGIDITY [None]
  - WHITE BLOOD CELL COUNT INCREASED [None]
